FAERS Safety Report 11004713 (Version 1)
Quarter: 2015Q2

REPORT INFORMATION
  Report Type: Spontaneous
  Country: BR (occurrence: BR)
  Receive Date: 20150409
  Receipt Date: 20150409
  Transmission Date: 20150821
  Serious: Yes (Death, Other)
  Sender: FDA-Public Use
  Company Number: BR-PFIZER INC-2013028282

PATIENT
  Age: 95 Year
  Sex: Female
  Weight: 70 kg

DRUGS (2)
  1. XALATAN [Suspect]
     Active Substance: LATANOPROST
     Indication: INTRAOCULAR PRESSURE TEST
     Dosage: 3 UG (1 DROP IN EACH EYE), 1X/DAY
     Route: 047
     Dates: start: 2005
  2. SOMALGIN CARDIO [Concomitant]
     Active Substance: ASPIRIN\DIHYDROXYALUMINUM AMINOACETATE ANHYDROUS\MAGNESIUM CARBONATE
     Indication: ANTICOAGULANT THERAPY
     Dosage: UNK
     Dates: start: 2010

REACTIONS (7)
  - Blood pressure decreased [Unknown]
  - Rectal cancer [Fatal]
  - Dizziness [Unknown]
  - Myocardial infarction [Unknown]
  - Headache [Unknown]
  - Urinary retention [Unknown]
  - Renal failure [Unknown]

NARRATIVE: CASE EVENT DATE: 201301
